FAERS Safety Report 19934472 (Version 1)
Quarter: 2021Q4

REPORT INFORMATION
  Report Type: Spontaneous
  Country: FR (occurrence: FR)
  Receive Date: 20211008
  Receipt Date: 20211008
  Transmission Date: 20220303
  Serious: Yes (Congenital Anomaly)
  Sender: FDA-Public Use
  Company Number: None

PATIENT

DRUGS (3)
  1. SINGULAIR [Suspect]
     Active Substance: MONTELUKAST SODIUM
     Indication: Foetal exposure during pregnancy
     Dosage: NOT SPECIFIED
     Route: 064
     Dates: start: 20200613
  2. QVAR [Suspect]
     Active Substance: BECLOMETHASONE DIPROPIONATE
     Indication: Foetal exposure timing unspecified
     Dosage: NOT SPECIFIED
     Route: 064
     Dates: start: 20200613
  3. FORMOTEROL FUMARATE [Suspect]
     Active Substance: FORMOTEROL FUMARATE
     Indication: Foetal exposure timing unspecified
     Dosage: NOT SPECIFIED
     Route: 064
     Dates: start: 20200613

REACTIONS (2)
  - Microcephaly [Not Recovered/Not Resolved]
  - Foetal growth restriction [Not Recovered/Not Resolved]

NARRATIVE: CASE EVENT DATE: 20210118
